FAERS Safety Report 18285892 (Version 1)
Quarter: 2020Q3

REPORT INFORMATION
  Report Type: Report from Study
  Country: IT (occurrence: IT)
  Receive Date: 20200919
  Receipt Date: 20200919
  Transmission Date: 20201103
  Serious: Yes (Other)
  Sender: FDA-Public Use
  Company Number: NVSC2020IT253232

PATIENT
  Age: 35 Year
  Sex: Female

DRUGS (1)
  1. FINGOLIMOD. [Suspect]
     Active Substance: FINGOLIMOD
     Indication: PRODUCT USED FOR UNKNOWN INDICATION
     Dosage: UNK
     Route: 065
     Dates: start: 201402

REACTIONS (4)
  - Pharyngeal disorder [Unknown]
  - Hyperthermia [Unknown]
  - Lymphocyte count decreased [Recovered/Resolved]
  - Hypogeusia [Unknown]

NARRATIVE: CASE EVENT DATE: 20200412
